FAERS Safety Report 7332149-8 (Version None)
Quarter: 2011Q1

REPORT INFORMATION
  Report Type: 
  Country: None (occurrence: None)
  Receive Date: 20110304
  Receipt Date: 20110225
  Transmission Date: 20110831
  Serious: Yes (Death)
  Sender: FDA-Public Use
  Company Number: PHHO2011BR03726

PATIENT
  Sex: Male
  Weight: 84 kg

DRUGS (10)
  1. BLINDED ENALAPRIL [Suspect]
     Indication: CARDIAC FAILURE
     Dosage: CODE NOT BROKEN
     Route: 048
     Dates: start: 20100611
  2. COMPARATOR ENALAPRIL [Suspect]
     Indication: CARDIAC FAILURE
     Dosage: UNK
     Dates: start: 20100611
  3. FUROSEMIDE [Concomitant]
     Indication: CARDIAC FAILURE
  4. ALISKIREN [Suspect]
     Indication: CARDIAC FAILURE
     Dosage: UNK
     Dates: start: 20100611
  5. CARVEDILOL [Concomitant]
  6. DIGOXIN [Concomitant]
     Indication: CARDIAC FAILURE
     Dosage: UNK
  7. SIMVASTATIN [Concomitant]
     Indication: DYSLIPIDAEMIA
  8. BLINDED ALISKIREN [Suspect]
     Indication: CARDIAC FAILURE
     Dosage: CODE NOT BROKEN
     Route: 048
     Dates: start: 20100611
  9. ASPIRIN [Concomitant]
     Indication: ACUTE CORONARY SYNDROME
     Dosage: UNK
  10. BLINDED NO TREATMENT RECEIVED [Suspect]
     Indication: CARDIAC FAILURE
     Dosage: CODE NOT BROKEN
     Route: 048
     Dates: start: 20100611

REACTIONS (3)
  - MALAISE [None]
  - SUDDEN DEATH [None]
  - CARDIO-RESPIRATORY ARREST [None]
